FAERS Safety Report 21577715 (Version 1)
Quarter: 2022Q4

REPORT INFORMATION
  Report Type: Report from Study
  Country: US (occurrence: US)
  Receive Date: 20221110
  Receipt Date: 20221110
  Transmission Date: 20230113
  Serious: Yes (Other)
  Sender: FDA-Public Use
  Company Number: US-AZURITY PHARMACEUTICALS, INC.-US-2022ARB002795

PATIENT

DRUGS (2)
  1. ENALAPRIL [Suspect]
     Active Substance: ENALAPRIL
     Indication: Hypertension
     Dosage: 0.04 MG/KG DAILY FOR THREE DAYS
  2. ENALAPRIL [Suspect]
     Active Substance: ENALAPRIL
     Indication: Left ventricular dysfunction

REACTIONS (1)
  - Blood pressure systolic increased [Recovering/Resolving]
